FAERS Safety Report 7023954-6 (Version None)
Quarter: 2010Q3

REPORT INFORMATION
  Report Type: 
  Country: None (occurrence: None)
  Receive Date: 20100920
  Receipt Date: 20100915
  Transmission Date: 20110219
  Serious: Yes (Other)
  Sender: FDA-Public Use
  Company Number: 8051013

PATIENT
  Sex: Male

DRUGS (4)
  1. KEPPRA [Suspect]
     Indication: EPILEPSY
     Dosage: 2000 MG TRANSPLACENTAL, 2000 MG DOSE FREQ: DAILY TRANSMAMMARY
     Route: 064
  2. PRENATAL VITAMINS [Concomitant]
  3. FOLIC ACID [Concomitant]
  4. IRON [Concomitant]

REACTIONS (4)
  - CONGENITAL TORTICOLLIS [None]
  - DRUG EXPOSURE VIA BREAST MILK [None]
  - GROSS MOTOR DELAY [None]
  - MATERNAL DRUGS AFFECTING FOETUS [None]
